FAERS Safety Report 25044270 (Version 3)
Quarter: 2025Q2

REPORT INFORMATION
  Report Type: Report from Study
  Country: CA (occurrence: CA)
  Receive Date: 20250306
  Receipt Date: 20250402
  Transmission Date: 20250717
  Serious: Yes (Other)
  Sender: TAKEDA
  Company Number: CA-TAKEDA-2025TUS023484

PATIENT
  Sex: Female

DRUGS (4)
  1. VEDOLIZUMAB [Suspect]
     Active Substance: VEDOLIZUMAB
     Indication: Colitis ulcerative
  2. VEDOLIZUMAB [Suspect]
     Active Substance: VEDOLIZUMAB
  3. IRON [Concomitant]
     Active Substance: IRON
     Indication: Supplementation therapy
  4. Cortiment [Concomitant]

REACTIONS (3)
  - Haematochezia [Unknown]
  - Colitis ulcerative [Recovered/Resolved]
  - Rectal haemorrhage [Unknown]
